FAERS Safety Report 6015063-X (Version None)
Quarter: 2008Q4

REPORT INFORMATION
  Report Type: 
  Country: None (occurrence: None)
  Receive Date: 20081222
  Receipt Date: 20081216
  Transmission Date: 20090506
  Serious: Yes (Hospitalization)
  Sender: FDA-Public Use
  Company Number: US-JNJFOC-20080306533

PATIENT
  Sex: Male
  Weight: 74.84 kg

DRUGS (6)
  1. DURAGESIC-100 [Suspect]
     Indication: BACK PAIN
     Dosage: DATES OF THERAPY- 12/07 - 03/08
     Route: 062
  2. ADVAIR DISKUS 250/50 [Concomitant]
     Indication: ASTHMA
     Route: 055
  3. ALBUTEROL [Concomitant]
     Indication: CHRONIC OBSTRUCTIVE PULMONARY DISEASE
     Dosage: AS NEEDED
     Route: 055
  4. FLEXERIL [Concomitant]
     Indication: BACK PAIN
     Dosage: DOSE - EVERY NIGHT
  5. AMBIEN [Concomitant]
     Indication: INSOMNIA
  6. COUMADIN [Concomitant]
     Indication: PULMONARY EMBOLISM

REACTIONS (10)
  - BLOOD DISORDER [None]
  - CHEST DISCOMFORT [None]
  - CHEST PAIN [None]
  - DRUG INEFFECTIVE [None]
  - DYSPNOEA [None]
  - HYPERHIDROSIS [None]
  - HYPOAESTHESIA [None]
  - INCORRECT DRUG ADMINISTRATION DURATION [None]
  - PRODUCT QUALITY ISSUE [None]
  - PULMONARY EMBOLISM [None]
